FAERS Safety Report 6816180-4 (Version None)
Quarter: 2010Q3

REPORT INFORMATION
  Report Type: 
  Country: None (occurrence: None)
  Receive Date: 20100702
  Receipt Date: 20100702
  Transmission Date: 20110219
  Serious: Yes (Hospitalization)
  Sender: FDA-Public Use
  Company Number: None

PATIENT
  Age: 81 Year
  Sex: Male
  Weight: 76.36 kg

DRUGS (14)
  1. MOBIC [Suspect]
     Dosage: PO RECENT
     Route: 048
  2. PLAVIX [Suspect]
     Indication: CORONARY ARTERY DISEASE
     Dosage: 75 QD PO CHRONIC
     Route: 048
  3. SKELAXIN [Concomitant]
  4. TUMS [Concomitant]
  5. IRON [Concomitant]
  6. PROTONIX [Concomitant]
  7. CRESTOR [Concomitant]
  8. MECLIZINE [Concomitant]
  9. COREG [Concomitant]
  10. COLACE [Concomitant]
  11. NITROGLYCERIN [Concomitant]
  12. POTASSIUM CHLORIDE [Concomitant]
  13. AVAPRO [Concomitant]
  14. CALCIUM GLUCONATE [Concomitant]

REACTIONS (2)
  - HAEMOGLOBIN DECREASED [None]
  - RETICULOCYTE COUNT INCREASED [None]
